FAERS Safety Report 20167139 (Version 1)
Quarter: 2021Q4

REPORT INFORMATION
  Report Type: Spontaneous
  Country: US (occurrence: US)
  Receive Date: 20211209
  Receipt Date: 20211209
  Transmission Date: 20220303
  Serious: No
  Sender: FDA-Public Use
  Company Number: US-SANOFI-00883592

PATIENT
  Age: 65 Year
  Sex: Male

DRUGS (2)
  1. TOUJEO MAX [Suspect]
     Active Substance: INSULIN GLARGINE
     Indication: Type 2 diabetes mellitus
     Dosage: 16 IU, QD
     Dates: start: 20210907
  2. TOUJEO MAX [Suspect]
     Active Substance: INSULIN GLARGINE
     Dosage: 26 IU, QD
     Dates: start: 20211025

REACTIONS (2)
  - Hypersensitivity [Unknown]
  - Sneezing [Unknown]

NARRATIVE: CASE EVENT DATE: 20210101
